FAERS Safety Report 5270871-8 (Version None)
Quarter: 2007Q1

REPORT INFORMATION
  Report Type: 
  Country: None (occurrence: None)
  Receive Date: 20070315
  Receipt Date: 20070302
  Transmission Date: 20070707
  Serious: Yes (Other)
  Sender: FDA-Public Use
  Company Number: S07-AUS-01089-01

PATIENT
  Age: 32 Year
  Sex: Male

DRUGS (4)
  1. CITALOPRAM HYDROBROMIDE [Suspect]
     Indication: DEPRESSION
     Dosage: 20 MG QD PO
     Route: 048
     Dates: start: 20070210
  2. CITALOPRAM HYDROBROMIDE [Suspect]
     Indication: DEPRESSION
     Dosage: 20 MG QD PO
     Route: 048
     Dates: end: 20070207
  3. CITALOPRAM HYDROBROMIDE [Suspect]
     Indication: DEPRESSION
     Dosage: 40 MG QD PO
     Route: 048
     Dates: start: 20070208, end: 20070209
  4. CLOZAPINE [Suspect]
     Indication: SCHIZOPHRENIA
     Dosage: 275 MG QD PO
     Route: 048
     Dates: start: 20070129, end: 20070212

REACTIONS (5)
  - BUNDLE BRANCH BLOCK RIGHT [None]
  - HYPERHIDROSIS [None]
  - MYOCARDITIS [None]
  - PYREXIA [None]
  - TACHYCARDIA [None]
